FAERS Safety Report 4455288-8 (Version None)
Quarter: 2004Q3

REPORT INFORMATION
  Report Type: 
  Country: None (occurrence: None)
  Receive Date: 20040917
  Receipt Date: 20040909
  Transmission Date: 20050211
  Serious: Yes (Hospitalization, Other)
  Sender: FDA-Public Use
  Company Number: EWC040639616

PATIENT
  Age: 30 Year
  Sex: Male

DRUGS (3)
  1. ZYPREXA [Suspect]
     Indication: SCHIZOPHRENIA, CATATONIC TYPE
     Dosage: 1 DSG FORM/2 DAY
     Dates: start: 20040401, end: 20040101
  2. CITALOPRAM HYDROBROMIDE [Concomitant]
  3. SEDUXEN (DIAZEPAM) [Concomitant]

REACTIONS (3)
  - ANURIA [None]
  - NEUROLEPTIC MALIGNANT SYNDROME [None]
  - PNEUMONIA ASPIRATION [None]
